FAERS Safety Report 4334763-0 (Version None)
Quarter: 2004Q2

REPORT INFORMATION
  Report Type: 
  Country: None (occurrence: None)
  Receive Date: 20040407
  Receipt Date: 20040407
  Transmission Date: 20050107
  Serious: Yes (Hospitalization)
  Sender: FDA-Public Use
  Company Number: None

PATIENT
  Age: 77 Year
  Sex: Male
  Weight: 68.0396 kg

DRUGS (2)
  1. CISPLATIN 100 MG/M2 [Suspect]
     Indication: LARYNGEAL CANCER
     Dosage: 185 MG IV X1 [CYCLE 1 -2/23/04, CYCLE 2-3/22/04]
     Route: 042
     Dates: start: 20040223
  2. CISPLATIN 100 MG/M2 [Suspect]
     Indication: LARYNGEAL CANCER
     Dosage: 185 MG IV X1 [CYCLE 1 -2/23/04, CYCLE 2-3/22/04]
     Route: 042
     Dates: start: 20040322

REACTIONS (2)
  - ASTHENIA [None]
  - DEHYDRATION [None]
